FAERS Safety Report 7028768-9 (Version None)
Quarter: 2010Q4

REPORT INFORMATION
  Report Type: 
  Country: None (occurrence: None)
  Receive Date: 20101004
  Receipt Date: 20101004
  Transmission Date: 20110411
  Serious: Yes (Other)
  Sender: FDA-Public Use
  Company Number: None

PATIENT
  Age: 45 Year
  Sex: Female
  Weight: 113.3993 kg

DRUGS (1)
  1. LAMOTRIGINE [Suspect]
     Indication: MIGRAINE
     Dosage: ONE PILL AT 200 MGS ONCE DAILY PO
     Route: 048
     Dates: start: 20100909, end: 20100929

REACTIONS (7)
  - HEADACHE [None]
  - INADEQUATE ANALGESIA [None]
  - INSOMNIA [None]
  - MIGRAINE [None]
  - NIGHTMARE [None]
  - PRODUCT SUBSTITUTION ISSUE [None]
  - REBOUND EFFECT [None]
